FAERS Safety Report 5711122-7 (Version None)
Quarter: 2008Q2

REPORT INFORMATION
  Report Type: 
  Country: None (occurrence: None)
  Receive Date: 20080421
  Receipt Date: 20080410
  Transmission Date: 20081010
  Serious: Yes (Other)
  Sender: FDA-Public Use
  Company Number: HQWYE618215NOV06

PATIENT
  Sex: Male

DRUGS (6)
  1. SIROLIMUS [Suspect]
     Indication: PROPHYLAXIS AGAINST TRANSPLANT REJECTION
     Route: 048
     Dates: start: 20051213, end: 20061103
  2. ACETYLSALICYLIC ACID SRT [Concomitant]
     Dosage: UNSPECIFIED
  3. LIPITOR [Concomitant]
     Dosage: UNSPECIFIED
  4. SEPTRA [Concomitant]
     Dosage: UNSPECIFIED
  5. MYCOPHENOLATE MOFETIL [Concomitant]
     Indication: PROPHYLAXIS AGAINST TRANSPLANT REJECTION
     Route: 048
     Dates: start: 20051019
  6. LOPRESSOR [Concomitant]
     Dosage: UNSPECIFIED

REACTIONS (1)
  - HEPATIC STEATOSIS [None]
